FAERS Safety Report 12818353 (Version 1)
Quarter: 2016Q4

REPORT INFORMATION
  Report Type: Spontaneous
  Country: US (occurrence: US)
  Receive Date: 20161005
  Receipt Date: 20161005
  Transmission Date: 20170207
  Serious: Yes (Other)
  Sender: FDA-Public Use
  Company Number: US-MYLANLABS-2016M1042534

PATIENT

DRUGS (1)
  1. ROSUVASTATIN. [Suspect]
     Active Substance: ROSUVASTATIN
     Indication: HYPERTRIGLYCERIDAEMIA
     Dosage: 10 MG, QD
     Route: 065

REACTIONS (1)
  - Myasthenia gravis [Recovered/Resolved]
